FAERS Safety Report 7443080-1 (Version None)
Quarter: 2011Q2

REPORT INFORMATION
  Report Type: 
  Country: None (occurrence: None)
  Receive Date: 20110428
  Receipt Date: 20110419
  Transmission Date: 20111010
  Serious: Yes (Death, Other)
  Sender: FDA-Public Use
  Company Number: US-ELI_LILLY_AND_COMPANY-US201104001130

PATIENT
  Sex: Female

DRUGS (5)
  1. LASIX [Concomitant]
  2. ADCIRCA [Suspect]
     Indication: PULMONARY ARTERIAL HYPERTENSION
     Dosage: 40 MG, QD
     Route: 048
     Dates: start: 20100810, end: 20110330
  3. DIGOXIN [Concomitant]
  4. REMODULIN [Concomitant]
  5. OXYGEN [Concomitant]

REACTIONS (2)
  - SCLERODERMA [None]
  - RIGHT VENTRICULAR FAILURE [None]
